FAERS Safety Report 5672680-4 (Version None)
Quarter: 2008Q1

REPORT INFORMATION
  Report Type: 
  Country: None (occurrence: None)
  Receive Date: 20080317
  Receipt Date: 20080306
  Transmission Date: 20080703
  Serious: Yes (Other)
  Sender: FDA-Public Use
  Company Number: 024735

PATIENT
  Age: 61 Year
  Sex: Female
  Weight: 111.1 kg

DRUGS (11)
  1. AZITHROMYCIN [Suspect]
     Indication: LOWER RESPIRATORY TRACT INFECTION
     Dosage: 500 MG ON DAY 1 + 250 MG DAY 2-5, ORAL
     Route: 048
     Dates: start: 20080215, end: 20080219
  2. METHYLPREDNISOLONE [Suspect]
     Indication: EAR INFECTION
     Dosage: 4 MG, DOSE PACK, ORAL
     Route: 048
     Dates: start: 20080226
  3. AMITRIPTYLINE HCL [Concomitant]
  4. CELEBREX [Concomitant]
  5. OXYCONTIN [Concomitant]
  6. HYDROCHLOROTHIAZIDE [Concomitant]
  7. JOINT SUPPORT (OTC) [Concomitant]
  8. POTASSIUM CHLORIDE [Concomitant]
  9. LYRICA [Concomitant]
  10. MIRALAX [Concomitant]
  11. VITAMIN E [Concomitant]

REACTIONS (4)
  - DEAFNESS [None]
  - EAR INFECTION [None]
  - FLUSHING [None]
  - TINNITUS [None]
